FAERS Safety Report 13086093 (Version 1)
Quarter: 2017Q1

REPORT INFORMATION
  Report Type: Report from Study
  Country: US (occurrence: US)
  Receive Date: 20170104
  Receipt Date: 20170104
  Transmission Date: 20170428
  Serious: Yes (Death)
  Sender: FDA-Public Use
  Company Number: US-PFIZER INC-2017000112

PATIENT

DRUGS (1)
  1. TOPOTECAN HYDROCHLORIDE. [Suspect]
     Active Substance: TOPOTECAN HYDROCHLORIDE
     Indication: SMALL CELL LUNG CANCER
     Dosage: 4 MG/M2, OVER 30 MINUTES (WEEKLY AS SECOND-LINE THERAPY)
     Route: 042

REACTIONS (1)
  - Death [Fatal]
